FAERS Safety Report 13427118 (Version 1)
Quarter: 2017Q2

REPORT INFORMATION
  Report Type: Spontaneous
  Country: US (occurrence: US)
  Receive Date: 20170411
  Receipt Date: 20170411
  Transmission Date: 20170830
  Serious: Yes (Other)
  Sender: FDA-Public Use
  Company Number: None

PATIENT
  Age: 61 Year
  Sex: Female
  Weight: 56.25 kg

DRUGS (7)
  1. CIPRODEX [Suspect]
     Active Substance: CIPROFLOXACIN HYDROCHLORIDE\DEXAMETHASONE
     Indication: EAR PAIN
     Dosage: ?          QUANTITY:3 DROP(S);?
     Route: 001
     Dates: start: 20170127, end: 20170130
  2. LYSINE [Concomitant]
     Active Substance: LYSINE
  3. CETIRIZINE HCI [Concomitant]
     Active Substance: CETIRIZINE HYDROCHLORIDE
  4. GINGER ROOT [Concomitant]
     Active Substance: GINGER
  5. PROBIOTIC 10 [Concomitant]
  6. VAGIFEM [Concomitant]
     Active Substance: ESTRADIOL
  7. CENTRUM SILVER MULTIVITAMIN1 [Concomitant]

REACTIONS (2)
  - Rash erythematous [None]
  - Pruritus [None]

NARRATIVE: CASE EVENT DATE: 20170128
